FAERS Safety Report 8106695-3 (Version None)
Quarter: 2012Q1

REPORT INFORMATION
  Report Type: 
  Country: None (occurrence: None)
  Receive Date: 20120130
  Receipt Date: 20120124
  Transmission Date: 20120608
  Serious: Yes (Hospitalization)
  Sender: FDA-Public Use
  Company Number: 2009SP023611

PATIENT
  Sex: Female
  Weight: 54.4316 kg

DRUGS (1)
  1. NUVARING [Suspect]
     Indication: CONTRACEPTION
     Dates: start: 20050801, end: 20070901

REACTIONS (10)
  - EXTRINSIC ILIAC VEIN COMPRESSION [None]
  - PHLEBITIS [None]
  - PREGNANCY WITH CONTRACEPTIVE DEVICE [None]
  - VAGINAL HAEMORRHAGE [None]
  - MATERNAL EXPOSURE DURING PREGNANCY [None]
  - DEEP VEIN THROMBOSIS [None]
  - ABORTION INDUCED [None]
  - ANAEMIA [None]
  - UTERINE SYNECHIAE [None]
  - ANXIETY [None]
